FAERS Safety Report 24277170 (Version 4)
Quarter: 2024Q4

REPORT INFORMATION
  Report Type: Spontaneous
  Country: US (occurrence: US)
  Receive Date: 20240903
  Receipt Date: 20241025
  Transmission Date: 20250115
  Serious: No
  Sender: PFIZER
  Company Number: US-PFIZER INC-202400244140

PATIENT
  Age: 12 Year
  Sex: Male

DRUGS (2)
  1. GENOTROPIN [Suspect]
     Active Substance: SOMATROPIN
     Indication: Growth hormone deficiency
     Dosage: 1MG, DAILY (12MG CARTRIDGE)
  2. GENOTROPIN [Suspect]
     Active Substance: SOMATROPIN
     Indication: Growth hormone deficiency
     Dosage: 1MG, DAILY (12MG CARTRIDGE)

REACTIONS (4)
  - Intentional device misuse [Unknown]
  - Device leakage [Unknown]
  - Drug dose omission by device [Unknown]
  - Drug administered in wrong device [Unknown]
